FAERS Safety Report 8076395-7 (Version None)
Quarter: 2012Q1

REPORT INFORMATION
  Report Type: 
  Country: None (occurrence: None)
  Receive Date: 20120127
  Receipt Date: 20120127
  Transmission Date: 20120608
  Serious: Yes (Congenital Anomaly)
  Sender: FDA-Public Use
  Company Number: None

PATIENT
  Age: 37 Year
  Sex: Female
  Weight: 68.038 kg

DRUGS (1)
  1. XYZAL [Suspect]
     Indication: URTICARIA CHRONIC
     Dosage: 5MG
     Route: 048
     Dates: start: 20090601, end: 20120123

REACTIONS (2)
  - MATERNAL EXPOSURE BEFORE PREGNANCY [None]
  - MATERNAL EXPOSURE DURING PREGNANCY [None]
